FAERS Safety Report 16540425 (Version 1)
Quarter: 2019Q3

REPORT INFORMATION
  Report Type: Spontaneous
  Country: US (occurrence: US)
  Receive Date: 20190707
  Receipt Date: 20190707
  Transmission Date: 20191004
  Serious: Yes (Disabling)
  Sender: FDA-Public Use
  Company Number: None

PATIENT
  Age: 32 Year
  Sex: Female
  Weight: 63.9 kg

DRUGS (7)
  1. AIMOVIG [Suspect]
     Active Substance: ERENUMAB-AOOE
     Indication: MIGRAINE
     Dosage: ?          QUANTITY:1 INJECTION(S);OTHER FREQUENCY:1 TIME A MONTH;OTHER ROUTE:STOMACH?
     Dates: start: 20190501
  2. BIOTIN [Concomitant]
     Active Substance: BIOTIN
  3. ZOLOFT [Concomitant]
     Active Substance: SERTRALINE HYDROCHLORIDE
  4. MULTI VITAMIN [Concomitant]
     Active Substance: VITAMINS
  5. MOTRIN IMITREX [Concomitant]
  6. COLLAGEN [Concomitant]
     Active Substance: COLLAGEN
  7. GLUCOSAMINE [Concomitant]
     Active Substance: GLUCOSAMINE

REACTIONS (12)
  - Increased appetite [None]
  - Arthralgia [None]
  - Alopecia [None]
  - Dizziness [None]
  - Menstruation irregular [None]
  - Nausea [None]
  - Hot flush [None]
  - Acne [None]
  - Abdominal distension [None]
  - Constipation [None]
  - Trichorrhexis [None]
  - Hormone level abnormal [None]

NARRATIVE: CASE EVENT DATE: 20190628
